FAERS Safety Report 6253452-9 (Version None)
Quarter: 2009Q2

REPORT INFORMATION
  Report Type: 
  Country: None (occurrence: None)
  Receive Date: 20090626
  Receipt Date: 20090318
  Transmission Date: 20091009
  Serious: Yes (Hospitalization)
  Sender: FDA-Public Use
  Company Number: 622884

PATIENT
  Sex: Male
  Weight: 98.9 kg

DRUGS (3)
  1. XELODA [Suspect]
     Indication: COLON CANCER
     Dosage: 2000 MG 2 PER DAY ORAL
     Route: 048
     Dates: start: 20090114, end: 20090314
  2. LIPITOR [Concomitant]
  3. VIAGRA [Concomitant]

REACTIONS (2)
  - ATRIAL FLUTTER [None]
  - CARDIAC FAILURE CONGESTIVE [None]
